FAERS Safety Report 13935481 (Version 1)
Quarter: 2017Q3

REPORT INFORMATION
  Report Type: Spontaneous
  Country: US (occurrence: US)
  Receive Date: 20170902
  Receipt Date: 20170902
  Transmission Date: 20171127
  Serious: No
  Sender: FDA-Public Use
  Company Number: None

PATIENT
  Age: 55 Year
  Sex: Female
  Weight: 103.5 kg

DRUGS (5)
  1. SERTRALINE [Concomitant]
     Active Substance: SERTRALINE HYDROCHLORIDE
  2. MORPHINE SULFATE ORAL SOLUTION [Suspect]
     Active Substance: MORPHINE SULFATE
     Indication: MIGRAINE
     Route: 048
     Dates: start: 20151001, end: 20170705
  3. ACETAZOLAMIDE. [Concomitant]
     Active Substance: ACETAZOLAMIDE
  4. ABILIFY [Concomitant]
     Active Substance: ARIPIPRAZOLE
  5. BIONPHARMA [Concomitant]

REACTIONS (5)
  - Tenderness [None]
  - Scar [None]
  - Swelling [None]
  - Abscess [None]
  - Breast abscess [None]

NARRATIVE: CASE EVENT DATE: 20170707
